FAERS Safety Report 8231613-7 (Version None)
Quarter: 2012Q1

REPORT INFORMATION
  Report Type: 
  Country: None (occurrence: None)
  Receive Date: 20120323
  Receipt Date: 20120313
  Transmission Date: 20120608
  Serious: Yes (Hospitalization, Other)
  Sender: FDA-Public Use
  Company Number: US-ELI_LILLY_AND_COMPANY-US201110001890

PATIENT
  Sex: Female

DRUGS (15)
  1. AMITRIPTYLINE HCL [Concomitant]
  2. FOLIC ACID [Concomitant]
  3. FORTEO [Suspect]
     Dosage: 20 UG, QD
     Route: 065
  4. CELEBREX [Concomitant]
  5. MULTI-VITAMIN [Concomitant]
  6. PRAVASTATIN [Concomitant]
  7. FORTEO [Suspect]
     Indication: OSTEOPOROSIS
     Dosage: 20 UG, QD
     Route: 065
     Dates: start: 20110815
  8. POTASSIUM [Concomitant]
  9. HYDROCHLOROTHIAZIDE [Concomitant]
  10. CARVEDILOL [Concomitant]
  11. GABAPENTIN [Concomitant]
  12. FORTEO [Suspect]
     Dosage: 20 UG, QD
     Route: 065
  13. BENAZEPRIL HYDROCHLORIDE [Concomitant]
  14. EVISTA [Suspect]
     Route: 065
  15. VITAMIN E [Concomitant]

REACTIONS (16)
  - DEVICE FAILURE [None]
  - VOMITING [None]
  - BACK PAIN [None]
  - ARTHRALGIA [None]
  - BONE PAIN [None]
  - INTERVERTEBRAL DISC OPERATION [None]
  - TRANSFUSION [None]
  - PAIN IN EXTREMITY [None]
  - POOR QUALITY SLEEP [None]
  - WEIGHT DECREASED [None]
  - NASOPHARYNGITIS [None]
  - NASAL CONGESTION [None]
  - BONE DISORDER [None]
  - MUSCLE SPASMS [None]
  - NAUSEA [None]
  - DIARRHOEA [None]
